FAERS Safety Report 8791496 (Version 2)
Quarter: 2012Q4

REPORT INFORMATION
  Report Type: Spontaneous
  Country: BE (occurrence: None)
  Receive Date: 20120910
  Receipt Date: 20120914
  Transmission Date: 20130627
  Serious: Yes (Other)
  Sender: FDA-Public Use
  Company Number: 2012033317

PATIENT
  Sex: Female

DRUGS (1)
  1. VIVAGLOBIN (IMMUNE GLOBULIN SUBCUTANEOUS (HUMAN)) LOT # 09940611A [Suspect]
     Route: 058

REACTIONS (1)
  - Angioedema [None]
